FAERS Safety Report 4990686-5 (Version None)
Quarter: 2006Q2

REPORT INFORMATION
  Report Type: 
  Country: None (occurrence: None)
  Receive Date: 20060427
  Receipt Date: 20060413
  Transmission Date: 20061013
  Serious: Yes (Other)
  Sender: FDA-Public Use
  Company Number: HQWYE400620MAR06

PATIENT
  Age: 23 Year
  Sex: Female

DRUGS (6)
  1. EFFEXOR XR [Suspect]
     Dosage: 75 MG 1X PER 1 DAY; SEE IMAGE
     Dates: start: 20060314, end: 20060301
  2. EFFEXOR XR [Suspect]
     Dosage: 75 MG 1X PER 1 DAY; SEE IMAGE
     Dates: start: 20060306, end: 20060313
  3. EFFEXOR XR [Suspect]
     Dosage: 75 MG 1X PER 1 DAY; SEE IMAGE
     Dates: start: 20060301
  4. CLONAZEPAM [Concomitant]
  5. LEVONORGESTREL W/ETHINYLESTRADIOL (ETHINYLESTRADIOL/LEVONORGESTREL) [Concomitant]
  6. ALBUTEROL [Concomitant]

REACTIONS (4)
  - CONSTIPATION [None]
  - DECREASED APPETITE [None]
  - HOMICIDAL IDEATION [None]
  - SUICIDAL IDEATION [None]
